FAERS Safety Report 4846675-4 (Version None)
Quarter: 2005Q4

REPORT INFORMATION
  Report Type: 
  Country: None (occurrence: None)
  Receive Date: 20051202
  Receipt Date: 20051121
  Transmission Date: 20060501
  Serious: Yes (Other)
  Sender: FDA-Public Use
  Company Number: 12892

PATIENT
  Age: 49 Year
  Sex: Male
  Weight: 60 kg

DRUGS (8)
  1. CARBOPLATIN [Suspect]
     Indication: BRONCHIAL CARCINOMA
     Dosage: 710 MG PER_CYCLE IV
     Route: 042
     Dates: start: 20040226, end: 20040226
  2. CARBOPLATIN [Suspect]
     Indication: LUNG NEOPLASM MALIGNANT
     Dosage: 710 MG PER_CYCLE IV
     Route: 042
     Dates: start: 20040226, end: 20040226
  3. GEMCITABINE HYDROCHLORIDE [Suspect]
     Indication: BRONCHIAL CARCINOMA
     Dosage: 1.6 G PER_CYCLE IV
     Route: 042
     Dates: start: 20040226, end: 20040226
  4. GEMCITABINE HYDROCHLORIDE [Suspect]
     Indication: LUNG NEOPLASM MALIGNANT
     Dosage: 1.6 G PER_CYCLE IV
     Route: 042
     Dates: start: 20040226, end: 20040226
  5. ONDANSETRON HYDROCHLORIDE DIHYDRATE [Concomitant]
  6. DEXAMETHASONE [Concomitant]
  7. METOCLOPRAMIDE HYDROCHLORIDE [Concomitant]
  8. TRAMAL [Concomitant]

REACTIONS (1)
  - PANCYTOPENIA [None]
